FAERS Safety Report 24548187 (Version 2)
Quarter: 2024Q4

REPORT INFORMATION
  Report Type: Spontaneous
  Country: CA (occurrence: CA)
  Receive Date: 20241025
  Receipt Date: 20241218
  Transmission Date: 20250115
  Serious: Yes (Hospitalization)
  Sender: ROCHE
  Company Number: CA-ROCHE-10000114712

PATIENT
  Age: 60 Year
  Sex: Male

DRUGS (1)
  1. RITUXIMAB [Suspect]
     Active Substance: RITUXIMAB
     Indication: Myasthenia gravis
     Route: 042

REACTIONS (12)
  - Generalised oedema [Recovering/Resolving]
  - Malaise [Recovering/Resolving]
  - Necrotising soft tissue infection [Recovering/Resolving]
  - Pelvic fluid collection [Recovering/Resolving]
  - Product dose omission issue [Unknown]
  - Product use in unapproved indication [Unknown]
  - Septic shock [Recovering/Resolving]
  - Streptococcal infection [Recovering/Resolving]
  - Subcutaneous emphysema [Recovering/Resolving]
  - Wound [Recovering/Resolving]
  - Diplopia [Recovering/Resolving]
  - Muscular weakness [Recovering/Resolving]
